FAERS Safety Report 22530545 (Version 1)
Quarter: 2023Q2

REPORT INFORMATION
  Report Type: Spontaneous
  Country: US (occurrence: None)
  Receive Date: 20230606
  Receipt Date: 20230606
  Transmission Date: 20230722
  Serious: Yes (Hospitalization)
  Sender: FDA-Public Use
  Company Number: None

PATIENT
  Age: 70 Year
  Sex: Female
  Weight: 77.4 kg

DRUGS (5)
  1. ETOPOSIDE [Suspect]
     Active Substance: ETOPOSIDE
     Indication: Lung neoplasm malignant
     Route: 042
     Dates: start: 20230210
  2. DEXAMETHASONE [Concomitant]
     Active Substance: DEXAMETHASONE
  3. FOSAPREPITANT [Concomitant]
     Active Substance: FOSAPREPITANT
  4. ONDANSETRON [Concomitant]
     Active Substance: ONDANSETRON
  5. CARBOPLATIN [Concomitant]
     Active Substance: CARBOPLATIN

REACTIONS (6)
  - Flushing [None]
  - Back pain [None]
  - Nausea [None]
  - Dyspnoea [None]
  - Hypoxia [None]
  - Oxygen saturation decreased [None]

NARRATIVE: CASE EVENT DATE: 20230530
